FAERS Safety Report 12422417 (Version 2)
Quarter: 2016Q2

REPORT INFORMATION
  Report Type: Report from Study
  Country: FR (occurrence: FR)
  Receive Date: 20160601
  Receipt Date: 20160621
  Transmission Date: 20160815
  Serious: Yes (Other)
  Sender: FDA-Public Use
  Company Number: FR-ROCHE-1767255

PATIENT
  Age: 60 Year
  Sex: Female

DRUGS (7)
  1. BLINDED OLAPARIB/PLACEBO [Suspect]
     Active Substance: OLAPARIB
     Route: 048
     Dates: start: 20160509, end: 20160509
  2. INEXIUM [Concomitant]
     Active Substance: ESOMEPRAZOLE
     Route: 048
  3. BEVACIZUMAB [Suspect]
     Active Substance: BEVACIZUMAB
     Indication: OVARIAN CANCER
     Dosage: LAST DOSE PRIOR TO SAE: 15/APR/2016
     Route: 042
     Dates: start: 20160415
  4. ULCAR (FRANCE) [Concomitant]
     Route: 048
  5. GAVISCON (ALGINIC ACID) [Concomitant]
     Route: 048
  6. ALPRAZOLAM. [Concomitant]
     Active Substance: ALPRAZOLAM
     Route: 048
  7. BLINDED OLAPARIB/PLACEBO [Suspect]
     Active Substance: OLAPARIB
     Indication: OVARIAN CANCER
     Dosage: LAST DOSE PRIOR TO SAE: 25/APR/2016
     Route: 048
     Dates: start: 20160415, end: 20160429

REACTIONS (2)
  - Oedema peripheral [Recovered/Resolved]
  - Haematoma [None]

NARRATIVE: CASE EVENT DATE: 20160425
